FAERS Safety Report 4513180-4 (Version None)
Quarter: 2004Q4

REPORT INFORMATION
  Report Type: 
  Country: None (occurrence: None)
  Receive Date: 20041124
  Receipt Date: 20041110
  Transmission Date: 20050328
  Serious: Yes (Life-Threatening, Hospitalization, Other)
  Sender: FDA-Public Use
  Company Number: USA041183762

PATIENT
  Sex: Female
  Weight: 82 kg

DRUGS (5)
  1. HUMALOG [Suspect]
     Indication: DIABETES MELLITUS
  2. HUMULIN R [Suspect]
     Indication: DIABETES MELLITUS
  3. HUMULIN N [Suspect]
     Indication: DIABETES MELLITUS
  4. LANTUS [Concomitant]
  5. AVANDIA [Concomitant]

REACTIONS (18)
  - ABDOMINAL DISTENSION [None]
  - APPENDIX DISORDER [None]
  - ARTHRALGIA [None]
  - BLOOD GLUCOSE INCREASED [None]
  - CARPAL TUNNEL SYNDROME [None]
  - CHOLECYSTITIS INFECTIVE [None]
  - GANGRENE [None]
  - HAEMORRHAGE [None]
  - HEADACHE [None]
  - HYPOAESTHESIA [None]
  - INTESTINAL GANGRENE [None]
  - MEDICATION ERROR [None]
  - MOVEMENT DISORDER [None]
  - NERVOUSNESS [None]
  - PAIN IN EXTREMITY [None]
  - POST PROCEDURAL COMPLICATION [None]
  - POST PROCEDURAL PAIN [None]
  - VISION BLURRED [None]
